FAERS Safety Report 14139263 (Version 3)
Quarter: 2017Q4

REPORT INFORMATION
  Report Type: Spontaneous
  Country: BR (occurrence: BR)
  Receive Date: 20171028
  Receipt Date: 20171226
  Transmission Date: 20180321
  Serious: Yes (Death, Other)
  Sender: FDA-Public Use
  Company Number: BR-ROCHE-2013408

PATIENT
  Sex: Female
  Weight: 120 kg

DRUGS (14)
  1. IRINOTECAN HYDROCHLORIDE. [Concomitant]
     Active Substance: IRINOTECAN HYDROCHLORIDE
     Dosage: RECEIVED 4TH CYCLE AS PER FOLFIRI PROTOCOL
     Route: 065
     Dates: start: 20151126
  2. IRINOTECAN HYDROCHLORIDE. [Concomitant]
     Active Substance: IRINOTECAN HYDROCHLORIDE
     Route: 065
     Dates: start: 20150921
  3. XELODA [Suspect]
     Active Substance: CAPECITABINE
     Route: 048
     Dates: start: 20150113
  4. FOLINIC ACID [Concomitant]
     Active Substance: LEUCOVORIN
     Dosage: RECEIVED 4TH CYCLE AS PER FOLFIRI PROTOCOL
     Route: 065
     Dates: start: 20151126
  5. XELODA [Suspect]
     Active Substance: CAPECITABINE
     Indication: COLON NEOPLASM
     Route: 048
  6. FLUOROURACIL. [Concomitant]
     Active Substance: FLUOROURACIL
     Indication: COLON NEOPLASM
     Dosage: AS PER FOLFIRI PROTOCOL
     Route: 065
  7. FLUOROURACIL. [Concomitant]
     Active Substance: FLUOROURACIL
     Route: 065
     Dates: start: 20150921
  8. IRINOTECAN HYDROCHLORIDE. [Concomitant]
     Active Substance: IRINOTECAN HYDROCHLORIDE
     Indication: COLON NEOPLASM
     Dosage: AS PER FOLFIRI PROTOCOL
     Route: 065
  9. XELODA [Suspect]
     Active Substance: CAPECITABINE
     Route: 048
     Dates: start: 20140102, end: 20141216
  10. XELODA [Suspect]
     Active Substance: CAPECITABINE
     Route: 048
  11. IRINOTECAN HYDROCHLORIDE. [Concomitant]
     Active Substance: IRINOTECAN HYDROCHLORIDE
     Route: 065
     Dates: start: 20111125, end: 201206
  12. FOLINIC ACID [Concomitant]
     Active Substance: LEUCOVORIN
     Indication: COLON NEOPLASM
     Route: 065
     Dates: start: 20111125, end: 201206
  13. FOLINIC ACID [Concomitant]
     Active Substance: LEUCOVORIN
     Route: 065
     Dates: start: 20150921
  14. FLUOROURACIL. [Concomitant]
     Active Substance: FLUOROURACIL
     Dosage: RECEIVED 4TH CYCLE AS PER FOLFIRI PROTOCOL
     Route: 065
     Dates: start: 20151126

REACTIONS (12)
  - Respiratory failure [Fatal]
  - Tooth loss [Not Recovered/Not Resolved]
  - Oliguria [Not Recovered/Not Resolved]
  - Palmar-plantar erythrodysaesthesia syndrome [Unknown]
  - Poor venous access [Not Recovered/Not Resolved]
  - Tachycardia [Unknown]
  - Hepatic failure [Unknown]
  - Swelling [Not Recovered/Not Resolved]
  - Periodontitis [Not Recovered/Not Resolved]
  - Cellulitis [Not Recovered/Not Resolved]
  - Pulpitis dental [Not Recovered/Not Resolved]
  - Pancreatic neoplasm [Not Recovered/Not Resolved]

NARRATIVE: CASE EVENT DATE: 20151003
